FAERS Safety Report 11682862 (Version 3)
Quarter: 2017Q1

REPORT INFORMATION
  Report Type: Report from Study
  Country: JP (occurrence: JP)
  Receive Date: 20151029
  Receipt Date: 20170216
  Transmission Date: 20170428
  Serious: No
  Sender: FDA-Public Use
  Company Number: JP-BRISTOL-MYERS SQUIBB COMPANY-BMS-2015-074012

PATIENT
  Age: 66 Year
  Sex: Male
  Weight: 60.2 kg

DRUGS (8)
  1. CERNILTON                          /00521401/ [Concomitant]
     Indication: BENIGN PROSTATIC HYPERPLASIA
     Dosage: 378 MG, QD
     Route: 048
     Dates: start: 20140722, end: 20140908
  2. HYPEN                              /00340101/ [Concomitant]
     Indication: CALCULUS BLADDER
     Dosage: 400 MG, QD
     Route: 065
  3. APIXABAN [Suspect]
     Active Substance: APIXABAN
     Indication: THROMBOSIS PROPHYLAXIS
     Dosage: 2.5 MG, BID
     Route: 048
     Dates: start: 20140624, end: 20140630
  4. MUCOSTA [Concomitant]
     Active Substance: REBAMIPIDE
     Indication: GASTRITIS
     Dosage: 300 MG, QD
     Route: 048
     Dates: start: 20140811, end: 20140824
  5. APIXABAN [Suspect]
     Active Substance: APIXABAN
     Indication: PRODUCT USED FOR UNKNOWN INDICATION
     Dosage: 5 MG, BID
     Route: 048
     Dates: start: 20141101
  6. FLOMOX                             /01418603/ [Concomitant]
     Active Substance: CEFCAPENE PIVOXIL HYDROCHLORIDE HYDRATE
     Indication: INFECTION
     Dosage: 300 MG, QD
     Route: 048
     Dates: start: 20140811, end: 20140824
  7. CRAVIT [Concomitant]
     Active Substance: LEVOFLOXACIN
     Indication: INFECTION
     Dosage: UNK
     Route: 048
     Dates: start: 20140826, end: 20140909
  8. APIXABAN [Suspect]
     Active Substance: APIXABAN
     Indication: PRODUCT USED FOR UNKNOWN INDICATION
     Dosage: 5 MG, BID
     Route: 048
     Dates: start: 20140701

REACTIONS (2)
  - Lithotripsy [Unknown]
  - Haematuria [Recovering/Resolving]

NARRATIVE: CASE EVENT DATE: 20140825
